FAERS Safety Report 7241611-8 (Version None)
Quarter: 2011Q1

REPORT INFORMATION
  Report Type: 
  Country: None (occurrence: None)
  Receive Date: 20110124
  Receipt Date: 20110114
  Transmission Date: 20110831
  Serious: Yes (Hospitalization)
  Sender: FDA-Public Use
  Company Number: BR-ASTRAZENECA-2011SE02837

PATIENT
  Age: 63 Year
  Sex: Male

DRUGS (1)
  1. ATACAND HCT [Suspect]
     Indication: HYPERTENSION
     Dosage: 16/12.5 MG
     Route: 048

REACTIONS (3)
  - SURGERY [None]
  - BLOOD PRESSURE INADEQUATELY CONTROLLED [None]
  - FALL [None]
